FAERS Safety Report 9169018 (Version 1)
Quarter: 2013Q1

REPORT INFORMATION
  Report Type: Spontaneous
  Country: US (occurrence: None)
  Receive Date: 20130307
  Receipt Date: 20130307
  Transmission Date: 20140127
  Serious: Yes (Other)
  Sender: FDA-Public Use
  Company Number: AUR-APL-2013-00965

PATIENT
  Age: 74 Year
  Sex: Female

DRUGS (1)
  1. ALENDRONIC ACIDE (ALENDRONIC ACID) [Suspect]
     Indication: PRODUCT USED FOR UNKNOWN INDICATION
     Dates: end: 20130102

REACTIONS (5)
  - Swelling face [None]
  - Swollen tongue [None]
  - Lip swelling [None]
  - Decreased appetite [None]
  - Ageusia [None]
